FAERS Safety Report 6828089-0 (Version None)
Quarter: 2010Q3

REPORT INFORMATION
  Report Type: 
  Country: None (occurrence: None)
  Receive Date: 20100709
  Receipt Date: 20070131
  Transmission Date: 20110219
  Serious: No
  Sender: FDA-Public Use
  Company Number: US-PFIZER INC-2007009364

PATIENT
  Sex: Female

DRUGS (5)
  1. CHANTIX [Suspect]
     Indication: SMOKING CESSATION THERAPY
     Dates: start: 20070123
  2. PROTONIX [Concomitant]
  3. OXYCODONE HCL [Concomitant]
  4. XANAX [Concomitant]
  5. ZYBAN [Concomitant]

REACTIONS (6)
  - ABNORMAL DREAMS [None]
  - HEADACHE [None]
  - NAUSEA [None]
  - ORAL HERPES [None]
  - RENAL PAIN [None]
  - SLEEP DISORDER [None]
